FAERS Safety Report 20401616 (Version 2)
Quarter: 2022Q1

REPORT INFORMATION
  Report Type: Spontaneous
  Country: US (occurrence: US)
  Receive Date: 20220131
  Receipt Date: 20220201
  Transmission Date: 20220424
  Serious: No
  Sender: FDA-Public Use
  Company Number: US-ABBVIE-21K-163-4188410-00

PATIENT

DRUGS (3)
  1. HUMIRA [Suspect]
     Active Substance: ADALIMUMAB
     Indication: Retinitis pigmentosa
     Route: 058
  2. HUMIRA [Suspect]
     Active Substance: ADALIMUMAB
     Indication: Macular oedema
  3. HUMIRA [Suspect]
     Active Substance: ADALIMUMAB
     Indication: Inflammation

REACTIONS (2)
  - Bladder disorder [Unknown]
  - Off label use [Unknown]
